FAERS Safety Report 8240815-5 (Version None)
Quarter: 2012Q1

REPORT INFORMATION
  Report Type: 
  Country: None (occurrence: None)
  Receive Date: 20120328
  Receipt Date: 20120322
  Transmission Date: 20120608
  Serious: Yes (Other)
  Sender: FDA-Public Use
  Company Number: PHHY2012BR025647

PATIENT
  Sex: Female

DRUGS (4)
  1. LEVOTHYROXINE SODIUM [Concomitant]
     Dosage: 100 UG, UNK
  2. ATENOLOL [Concomitant]
     Indication: HYPERTENSION
  3. CHLORTHALIDONE [Concomitant]
     Indication: HYPERTENSION
  4. ZOLEDRONOC ACID [Suspect]
     Indication: BONE DECALCIFICATION
     Dosage: 5 MG, UNK
     Route: 042
     Dates: start: 20110321

REACTIONS (6)
  - BONE DENSITY DECREASED [None]
  - DYSENTERY [None]
  - DEHYDRATION [None]
  - RETCHING [None]
  - NAUSEA [None]
  - MYALGIA [None]
